FAERS Safety Report 4893684-5 (Version None)
Quarter: 2005Q4

REPORT INFORMATION
  Report Type: 
  Country: None (occurrence: None)
  Receive Date: 20051223
  Receipt Date: 20050926
  Transmission Date: 20060501
  Serious: No
  Sender: FDA-Public Use
  Company Number: 2005PV002499

PATIENT
  Age: 41 Year
  Sex: Male

DRUGS (3)
  1. SYMLIN [Suspect]
     Indication: DIABETES MELLITUS
     Dosage: 15 MCG;TID;SC
     Route: 058
     Dates: start: 20050925
  2. HUMALOG [Concomitant]
  3. LANTUS [Concomitant]

REACTIONS (4)
  - BLOOD GLUCOSE INCREASED [None]
  - MEDICATION ERROR [None]
  - NAUSEA [None]
  - WRONG DRUG ADMINISTERED [None]
